FAERS Safety Report 20511393 (Version 1)
Quarter: 2022Q1

REPORT INFORMATION
  Report Type: Spontaneous
  Country: US (occurrence: None)
  Receive Date: 20220223
  Receipt Date: 20220223
  Transmission Date: 20220423
  Serious: No
  Sender: FDA-Public Use
  Company Number: None

PATIENT
  Sex: Male
  Weight: 83.91 kg

DRUGS (9)
  1. INLYTA [Suspect]
     Active Substance: AXITINIB
     Indication: Renal cancer
     Dosage: OTHER FREQUENCY : Q12H;?
     Route: 048
  2. INLYTA [Suspect]
     Active Substance: AXITINIB
     Indication: Renal cancer
     Dosage: OTHER FREQUENCY : Q12H;?
     Route: 048
  3. ASPIRIN [Concomitant]
  4. ATIVAN [Concomitant]
     Active Substance: LORAZEPAM
  5. ATORVASTATIN [Concomitant]
  6. COLACE [Concomitant]
     Active Substance: DOCUSATE SODIUM
  7. DEXAMETHASONE [Concomitant]
     Active Substance: DEXAMETHASONE
  8. MIRALAX [Concomitant]
  9. OXYCODONE [Concomitant]
     Active Substance: OXYCODONE

REACTIONS (4)
  - Confusional state [None]
  - Seizure [None]
  - Cerebral disorder [None]
  - Therapy cessation [None]
